FAERS Safety Report 25224410 (Version 1)
Quarter: 2025Q2

REPORT INFORMATION
  Report Type: Spontaneous
  Country: US (occurrence: None)
  Receive Date: 20250421
  Receipt Date: 20250421
  Transmission Date: 20250717
  Serious: Yes (Hospitalization)
  Sender: FDA-CTU
  Company Number: None

PATIENT
  Sex: Female

DRUGS (2)
  1. OPSUMIT [Suspect]
     Active Substance: MACITENTAN
     Indication: Pulmonary arterial hypertension
     Dosage: 10 MG DAILY ORAL
     Route: 048
     Dates: start: 20180307
  2. UPTRAVI [Suspect]
     Active Substance: SELEXIPAG

REACTIONS (4)
  - Dyspepsia [None]
  - Vomiting [None]
  - Intra-abdominal haemorrhage [None]
  - Product dose omission issue [None]
